FAERS Safety Report 11878750 (Version 2)
Quarter: 2016Q1

REPORT INFORMATION
  Report Type: Spontaneous
  Country: GB (occurrence: GB)
  Receive Date: 20151230
  Receipt Date: 20160108
  Transmission Date: 20160526
  Serious: Yes (Hospitalization, Other)
  Sender: FDA-Public Use
  Company Number: GB-ASTRAZENECA-2015SF30842

PATIENT
  Age: 55 Year
  Sex: Female

DRUGS (12)
  1. RANITIDINE [Concomitant]
     Active Substance: RANITIDINE\RANITIDINE HYDROCHLORIDE
  2. ASPIRIN. [Concomitant]
     Active Substance: ASPIRIN
  3. METFORMIN [Concomitant]
     Active Substance: METFORMIN HYDROCHLORIDE
  4. GABAPENTIN. [Concomitant]
     Active Substance: GABAPENTIN
  5. BISOPROLOL [Concomitant]
     Active Substance: BISOPROLOL
  6. FUROSEMIDE. [Concomitant]
     Active Substance: FUROSEMIDE
  7. CANDESARTAN [Suspect]
     Active Substance: CANDESARTAN
     Indication: CARDIAC FAILURE
     Route: 048
  8. CANDESARTAN [Suspect]
     Active Substance: CANDESARTAN
     Indication: CARDIAC FAILURE
     Route: 048
     Dates: start: 20151015
  9. ATORVASTATIN [Concomitant]
     Active Substance: ATORVASTATIN
  10. MST CONTINUS [Concomitant]
     Active Substance: MORPHINE SULFATE
     Dosage: 5MG IN MORNING AND 10MG AT NIGHT
  11. NOVOMIX [Concomitant]
     Active Substance: INSULIN ASPART
  12. DULOXETINE. [Concomitant]
     Active Substance: DULOXETINE

REACTIONS (7)
  - Fall [Unknown]
  - Ankle fracture [Unknown]
  - Acute kidney injury [Recovered/Resolved]
  - Orthostatic hypotension [Recovered/Resolved]
  - Accidental overdose [Unknown]
  - Lower limb fracture [Unknown]
  - Drug prescribing error [Unknown]

NARRATIVE: CASE EVENT DATE: 20151030
